FAERS Safety Report 15868506 (Version 1)
Quarter: 2019Q1

REPORT INFORMATION
  Report Type: Spontaneous
  Country: US (occurrence: US)
  Receive Date: 20190125
  Receipt Date: 20190125
  Transmission Date: 20190417
  Serious: Yes (Hospitalization, Other)
  Sender: FDA-Public Use
  Company Number: US-NOVOPROD-608651

PATIENT
  Age: 35 Year
  Sex: Male
  Weight: 114 kg

DRUGS (6)
  1. NOVOSEVEN RT [Suspect]
     Active Substance: COAGULATION FACTOR VIIA RECOMBINANT HUMAN
     Dosage: UNK
     Route: 042
     Dates: start: 2017
  2. NOVOSEVEN RT [Suspect]
     Active Substance: COAGULATION FACTOR VIIA RECOMBINANT HUMAN
     Indication: HAEMOPHILIA B WITH ANTI FACTOR IX
     Dosage: UNK
     Route: 042
     Dates: start: 20150310, end: 2015
  3. NOVOSEVEN RT [Suspect]
     Active Substance: COAGULATION FACTOR VIIA RECOMBINANT HUMAN
     Dosage: 30000 ?G, EVERY 3 HOURS
     Route: 042
     Dates: start: 20150406, end: 2015
  4. TRANEXAMIC ACID. [Suspect]
     Active Substance: TRANEXAMIC ACID
     Indication: HAEMOPHILIA B WITH ANTI FACTOR IX
     Dosage: 1.3 G, QID
     Route: 042
  5. NOVOSEVEN RT [Suspect]
     Active Substance: COAGULATION FACTOR VIIA RECOMBINANT HUMAN
     Dosage: 24000 ?G, UNK
     Route: 042
     Dates: start: 2015, end: 20150414
  6. NOVOSEVEN RT [Suspect]
     Active Substance: COAGULATION FACTOR VIIA RECOMBINANT HUMAN
     Dosage: DOSE INCREASED
     Route: 042
     Dates: start: 2015, end: 2015

REACTIONS (3)
  - Post procedural haemorrhage [Unknown]
  - Pulmonary embolism [Recovered/Resolved]
  - Thrombosis [Unknown]

NARRATIVE: CASE EVENT DATE: 201503
